FAERS Safety Report 8369702-9 (Version None)
Quarter: 2012Q2

REPORT INFORMATION
  Report Type: 
  Country: None (occurrence: None)
  Receive Date: 20120518
  Receipt Date: 20120507
  Transmission Date: 20120825
  Serious: Yes (Disabling)
  Sender: FDA-Public Use
  Company Number: ES-BRISTOL-MYERS SQUIBB COMPANY-16587586

PATIENT
  Age: 57 Year
  Sex: Male

DRUGS (1)
  1. MITOMYCIN [Suspect]
     Indication: BLADDER CANCER
     Dosage: INJECTION
     Route: 043
     Dates: start: 20110831, end: 20110831

REACTIONS (5)
  - POLLAKIURIA [None]
  - PRURITUS [None]
  - RASH [None]
  - HAEMATURIA [None]
  - PAIN [None]
